FAERS Safety Report 8622108 (Version 2)
Quarter: 2013Q4

REPORT INFORMATION
  Report Type: Spontaneous
  Country: US (occurrence: None)
  Receive Date: 20120606
  Receipt Date: 20131101
  Transmission Date: 20140711
  Serious: Yes (Other)
  Sender: FDA-Public Use
  Company Number: AUR-APL-2012-02489

PATIENT
  Age: 60 Year
  Sex: Female

DRUGS (2)
  1. AMOXICILLIN [Suspect]
     Indication: TOOTHACHE
     Dosage: 1500 MG (500 MG,3 IN 1 D),
     Dates: start: 2012, end: 2012
  2. LYRICA [Suspect]
     Indication: DIABETIC NEUROPATHY
     Dosage: 150 MG (75 MG,2 IN 1 D),ORAL, (75 MG, 1 D), ORAL
     Route: 048
     Dates: start: 2005, end: 2005

REACTIONS (6)
  - Tooth infection [None]
  - Toothache [None]
  - Pain in extremity [None]
  - Erythema [None]
  - Burning sensation [None]
  - Gait disturbance [None]
